FAERS Safety Report 14850957 (Version 2)
Quarter: 2018Q2

REPORT INFORMATION
  Report Type: Spontaneous
  Country: US (occurrence: US)
  Receive Date: 20180506
  Receipt Date: 20180527
  Transmission Date: 20180711
  Serious: No
  Sender: FDA-Public Use
  Company Number: US-JNJFOC-20180430021

PATIENT
  Age: 84 Year
  Sex: Male

DRUGS (13)
  1. IMBRUVICA [Suspect]
     Active Substance: IBRUTINIB
     Indication: PRODUCT USED FOR UNKNOWN INDICATION
     Route: 048
     Dates: start: 20130713
  2. ATORVASTATIN [Concomitant]
     Active Substance: ATORVASTATIN
  3. ENALAPRIL [Concomitant]
     Active Substance: ENALAPRIL
  4. ATROPINE. [Concomitant]
     Active Substance: ATROPINE
  5. ALPRAZOLAM. [Concomitant]
     Active Substance: ALPRAZOLAM
  6. LEVOFLOXACIN. [Concomitant]
     Active Substance: LEVOFLOXACIN
  7. IMBRUVICA [Suspect]
     Active Substance: IBRUTINIB
     Indication: PRODUCT USED FOR UNKNOWN INDICATION
     Route: 048
     Dates: start: 20170714, end: 20180405
  8. CHOLECALCIFEROL [Concomitant]
     Active Substance: CHOLECALCIFEROL
  9. DIPHENOXYLATE [Concomitant]
     Active Substance: DIPHENOXYLATE
  10. NAPROXEN. [Concomitant]
     Active Substance: NAPROXEN
  11. ALLOPURINOL. [Concomitant]
     Active Substance: ALLOPURINOL
  12. LOPERAMIDE [Concomitant]
     Active Substance: LOPERAMIDE
  13. BUDESONIDE. [Concomitant]
     Active Substance: BUDESONIDE

REACTIONS (1)
  - Drug ineffective [Unknown]

NARRATIVE: CASE EVENT DATE: 20180405
